FAERS Safety Report 6030666-4 (Version None)
Quarter: 2009Q1

REPORT INFORMATION
  Report Type: 
  Country: None (occurrence: None)
  Receive Date: 20090107
  Receipt Date: 20080916
  Transmission Date: 20090719
  Serious: No
  Sender: FDA-Public Use
  Company Number: A0747700A

PATIENT
  Age: 72 Year
  Sex: Female

DRUGS (1)
  1. TAGAMET HB 200 [Suspect]

REACTIONS (1)
  - DRUG INEFFECTIVE [None]
